FAERS Safety Report 10251951 (Version 1)
Quarter: 2014Q2

REPORT INFORMATION
  Report Type: Spontaneous
  Country: US (occurrence: US)
  Receive Date: 20140623
  Receipt Date: 20140623
  Transmission Date: 20141212
  Serious: No
  Sender: FDA-Public Use
  Company Number: US-009507513-1406USA005936

PATIENT
  Age: 29 Year
  Sex: Female
  Weight: 218 kg

DRUGS (1)
  1. NEXPLANON [Suspect]
     Indication: CONTRACEPTION
     Dosage: UNK
     Dates: start: 20131216

REACTIONS (4)
  - Acne [Unknown]
  - Hot flush [Unknown]
  - Breast tenderness [Unknown]
  - Fatigue [Unknown]
